FAERS Safety Report 4695879-2 (Version None)
Quarter: 2005Q2

REPORT INFORMATION
  Report Type: 
  Country: None (occurrence: None)
  Receive Date: 20050621
  Receipt Date: 20050608
  Transmission Date: 20051028
  Serious: Yes (Hospitalization)
  Sender: FDA-Public Use
  Company Number: IT-JNJFOC-20050200553

PATIENT

DRUGS (2)
  1. REOPRO [Suspect]
     Indication: ACUTE MYOCARDIAL INFARCTION
     Route: 042
  2. RETEVASE [Suspect]
     Indication: ACUTE MYOCARDIAL INFARCTION
     Route: 042

REACTIONS (7)
  - CARDIOGENIC SHOCK [None]
  - CORONARY ARTERY STENOSIS [None]
  - DRUG INTERACTION [None]
  - MYOCARDIAL ISCHAEMIA [None]
  - POST PROCEDURAL HAEMATOMA [None]
  - VASCULAR CALCIFICATION [None]
  - VASCULAR PSEUDOANEURYSM [None]
